FAERS Safety Report 18180444 (Version 1)
Quarter: 2020Q3

REPORT INFORMATION
  Report Type: Spontaneous
  Country: US (occurrence: US)
  Receive Date: 20200821
  Receipt Date: 20200821
  Transmission Date: 20201103
  Serious: Yes (Hospitalization, Other)
  Sender: FDA-Public Use
  Company Number: None

PATIENT
  Age: 9 Year
  Sex: Male

DRUGS (3)
  1. SILDENAFIL. [Suspect]
     Active Substance: SILDENAFIL
     Indication: HEART DISEASE CONGENITAL
     Route: 048
     Dates: start: 20200407
  2. MUPIROCIN. [Concomitant]
     Active Substance: MUPIROCIN
  3. SILDENAFIL. [Suspect]
     Active Substance: SILDENAFIL
     Indication: COR PULMONALE
     Route: 048
     Dates: start: 20200407

REACTIONS (2)
  - Cardiac operation [None]
  - Aneurysm [None]

NARRATIVE: CASE EVENT DATE: 20200727
